FAERS Safety Report 4330944-0 (Version None)
Quarter: 2004Q1

REPORT INFORMATION
  Report Type: 
  Country: None (occurrence: None)
  Receive Date: 20040330
  Receipt Date: 20040322
  Transmission Date: 20041129
  Serious: Yes (Hospitalization)
  Sender: FDA-Public Use
  Company Number: MAG-2004-0000251

PATIENT
  Age: 67 Year
  Sex: Female

DRUGS (3)
  1. POVIDONE IODINE [Suspect]
     Dosage: 1 APPLIC, SINGLE, TOPICAL
     Route: 061
     Dates: start: 20031230, end: 20031230
  2. ATARAX [Suspect]
     Dosage: 100 MG, ORAL
     Route: 048
     Dates: start: 20031230
  3. PREVISCAN (FLUINDIONE) [Concomitant]

REACTIONS (4)
  - ANGIONEUROTIC OEDEMA [None]
  - DERMATITIS ALLERGIC [None]
  - DERMATITIS CONTACT [None]
  - HYPERSENSITIVITY [None]
